FAERS Safety Report 10173176 (Version 1)
Quarter: 2014Q2

REPORT INFORMATION
  Report Type: Spontaneous
  Country: US (occurrence: None)
  Receive Date: 20140514
  Receipt Date: 20140514
  Transmission Date: 20141212
  Serious: Yes (Other)
  Sender: FDA-Public Use
  Company Number: None

PATIENT
  Age: 53 Year
  Sex: Female

DRUGS (1)
  1. COPAXONE [Suspect]
     Indication: RELAPSING-REMITTING MULTIPLE SCLEROSIS
     Dosage: 40MG SYRINGE 3 TIMES A WEEK SUBQ
     Dates: start: 20140325, end: 20140512

REACTIONS (10)
  - Palpitations [None]
  - Muscle spasms [None]
  - Freezing phenomenon [None]
  - Hyperhidrosis [None]
  - Nausea [None]
  - Diarrhoea [None]
  - Fall [None]
  - Aphasia [None]
  - Walking aid user [None]
  - Vomiting [None]
